FAERS Safety Report 16072639 (Version 2)
Quarter: 2019Q4

REPORT INFORMATION
  Report Type: Report from Study
  Country: GB (occurrence: GB)
  Receive Date: 20190314
  Receipt Date: 20191206
  Transmission Date: 20200122
  Serious: Yes (Other)
  Sender: FDA-Public Use
  Company Number: GB-UCBSA-2018052979

PATIENT
  Sex: Female

DRUGS (2)
  1. CERTOLIZUMAB PEGOL RA AUTOCLICKS [Suspect]
     Active Substance: CERTOLIZUMAB PEGOL
     Indication: RHEUMATOID ARTHRITIS
     Dosage: 400 MG, EV 2 WEEKS(QOW)
     Route: 058
     Dates: start: 20180924, end: 201810
  2. CERTOLIZUMAB PEGOL RA AUTOCLICKS [Suspect]
     Active Substance: CERTOLIZUMAB PEGOL
     Dosage: 200 MG, EV 2 WEEKS(QOW)
     Route: 058
     Dates: start: 201810, end: 2018

REACTIONS (3)
  - Gastric infection [Unknown]
  - Viral infection [Unknown]
  - Nasopharyngitis [Unknown]

NARRATIVE: CASE EVENT DATE: 2018
